FAERS Safety Report 4995551-5 (Version None)
Quarter: 2006Q2

REPORT INFORMATION
  Report Type: 
  Country: None (occurrence: None)
  Receive Date: 20060508
  Receipt Date: 20060321
  Transmission Date: 20061013
  Serious: Yes (Death, Hospitalization)
  Sender: FDA-Public Use
  Company Number: IS-ROCHE-441065

PATIENT
  Age: 52 Year
  Sex: Male

DRUGS (4)
  1. XELODA [Suspect]
     Route: 048
     Dates: start: 20060228, end: 20060318
  2. EPIRUBICIN [Concomitant]
  3. CISPLATIN [Concomitant]
  4. INSULIN [Concomitant]
     Dosage: REPORTED AS ^VARIABLE^
     Route: 058

REACTIONS (1)
  - EMBOLIC STROKE [None]
